FAERS Safety Report 13139068 (Version 1)
Quarter: 2017Q1

REPORT INFORMATION
  Report Type: Spontaneous
  Country: US (occurrence: US)
  Receive Date: 20170123
  Receipt Date: 20170123
  Transmission Date: 20170428
  Serious: No
  Sender: FDA-Public Use
  Company Number: US-009507513-1701USA002544

PATIENT
  Sex: Female

DRUGS (9)
  1. INVOKANA [Concomitant]
     Active Substance: CANAGLIFLOZIN
  2. VITAMIN D [Concomitant]
     Active Substance: CHOLECALCIFEROL
  3. JANUMET XR [Suspect]
     Active Substance: METFORMIN HYDROCHLORIDE\SITAGLIPTIN PHOSPHATE
     Indication: TYPE 2 DIABETES MELLITUS
     Dosage: UNK, UNKNOWN
     Route: 048
  4. OLMETEC [Concomitant]
     Active Substance: OLMESARTAN MEDOXOMIL
  5. ZOCOR [Concomitant]
     Active Substance: SIMVASTATIN
  6. CENTRUM SILVER [Concomitant]
     Active Substance: MINERALS\VITAMINS
  7. CELEBREX [Concomitant]
     Active Substance: CELECOXIB
  8. NATURES BOUNTY ADVANCED PROBIOTIC 10 [Concomitant]
  9. BENICAR [Concomitant]
     Active Substance: OLMESARTAN MEDOXOMIL

REACTIONS (1)
  - Pruritus [Recovered/Resolved]
